FAERS Safety Report 25047024 (Version 1)
Quarter: 2025Q1

REPORT INFORMATION
  Report Type: Spontaneous
  Country: CA (occurrence: CA)
  Receive Date: 20250306
  Receipt Date: 20250306
  Transmission Date: 20250408
  Serious: Yes (Death, Other)
  Sender: PFIZER
  Company Number: CA-PFIZER INC-PV202400113861

PATIENT
  Age: 58 Year
  Sex: Male
  Weight: 92.9 kg

DRUGS (19)
  1. ZIRABEV [Suspect]
     Active Substance: BEVACIZUMAB-BVZR
     Indication: Colorectal cancer metastatic
     Route: 042
     Dates: start: 20240718
  2. ZIRABEV [Suspect]
     Active Substance: BEVACIZUMAB-BVZR
     Indication: Colon cancer
     Route: 042
     Dates: start: 20240829
  3. ZIRABEV [Suspect]
     Active Substance: BEVACIZUMAB-BVZR
     Route: 042
     Dates: start: 20240919
  4. ZIRABEV [Suspect]
     Active Substance: BEVACIZUMAB-BVZR
     Route: 042
     Dates: start: 20241008
  5. ZIRABEV [Suspect]
     Active Substance: BEVACIZUMAB-BVZR
     Route: 042
     Dates: start: 20241008
  6. ZIRABEV [Suspect]
     Active Substance: BEVACIZUMAB-BVZR
     Route: 042
     Dates: start: 20241016
  7. ZIRABEV [Suspect]
     Active Substance: BEVACIZUMAB-BVZR
     Route: 042
     Dates: start: 20241022
  8. ZIRABEV [Suspect]
     Active Substance: BEVACIZUMAB-BVZR
     Route: 042
     Dates: start: 20241105
  9. ZIRABEV [Suspect]
     Active Substance: BEVACIZUMAB-BVZR
     Route: 042
     Dates: start: 20241224
  10. ZIRABEV [Suspect]
     Active Substance: BEVACIZUMAB-BVZR
     Route: 042
     Dates: start: 20241224
  11. ZIRABEV [Suspect]
     Active Substance: BEVACIZUMAB-BVZR
     Route: 042
     Dates: start: 20250108
  12. ZIRABEV [Suspect]
     Active Substance: BEVACIZUMAB-BVZR
     Route: 042
     Dates: start: 20250122
  13. ZIRABEV [Suspect]
     Active Substance: BEVACIZUMAB-BVZR
     Dates: start: 20250205
  14. APIXABAN [Concomitant]
     Active Substance: APIXABAN
     Dosage: 5 MG, 2X/DAY
     Route: 048
  15. ACETAMINOPHEN [Concomitant]
     Active Substance: ACETAMINOPHEN
     Indication: Premedication
     Route: 048
  16. DIPHENHYDRAMINE [Concomitant]
     Active Substance: DIPHENHYDRAMINE
     Indication: Premedication
     Route: 048
  17. PROCHLORPERAZINE [Concomitant]
     Active Substance: PROCHLORPERAZINE
     Route: 048
  18. VENTOLIN [Concomitant]
     Active Substance: ALBUTEROL SULFATE
  19. ZOFRAN [Concomitant]
     Active Substance: ONDANSETRON HYDROCHLORIDE
     Route: 048

REACTIONS (8)
  - Death [Fatal]
  - Nausea [Recovered/Resolved]
  - Blood pressure increased [Unknown]
  - Fatigue [Recovered/Resolved]
  - Malaise [Not Recovered/Not Resolved]
  - Poor venous access [Unknown]
  - Weight decreased [Recovering/Resolving]
  - Blood pressure systolic increased [Not Recovered/Not Resolved]

NARRATIVE: CASE EVENT DATE: 20240101
